FAERS Safety Report 11952424 (Version 1)
Quarter: 2016Q1

REPORT INFORMATION
  Report Type: Not Available
  Country: US (occurrence: US)
  Receive Date: 20160125
  Receipt Date: 20160125
  Transmission Date: 20160526
  Serious: No
  Sender: FDA-Public Use
  Company Number: US-CIPHERPHARMA-2015-US-000571

PATIENT
  Age: 51 Year
  Sex: Female
  Weight: 65.77 kg

DRUGS (1)
  1. SITAVIG [Suspect]
     Active Substance: ACYCLOVIR
     Dosage: 1 TABLET
     Route: 048
     Dates: start: 20151122, end: 20151122

REACTIONS (4)
  - Agitation [Unknown]
  - Insomnia [Unknown]
  - Product solubility abnormal [None]
  - Nightmare [Unknown]

NARRATIVE: CASE EVENT DATE: 20151122
